FAERS Safety Report 5479643-2 (Version None)
Quarter: 2007Q4

REPORT INFORMATION
  Report Type: 
  Country: None (occurrence: None)
  Receive Date: 20071008
  Receipt Date: 20071002
  Transmission Date: 20080405
  Serious: Yes (Hospitalization)
  Sender: FDA-Public Use
  Company Number: A0686205A

PATIENT
  Age: 45 Year
  Sex: Male

DRUGS (13)
  1. TOPOTECAN [Suspect]
     Indication: EWING'S SARCOMA METASTATIC
     Dosage: 1.8MG CYCLIC
     Route: 042
     Dates: start: 20070912
  2. TARCEVA [Suspect]
     Indication: EWING'S SARCOMA METASTATIC
     Dosage: 150MG PER DAY
     Route: 048
     Dates: start: 20070918
  3. ASPIRIN [Concomitant]
  4. BUPROPION HCL [Concomitant]
  5. DILTIAZEM [Concomitant]
  6. FLUTICASONE PROPIONATE [Concomitant]
  7. HYDROCODONE [Concomitant]
  8. LYRICA [Concomitant]
  9. MUCINEX [Concomitant]
  10. SENNA [Concomitant]
  11. SPIRIVA [Concomitant]
  12. FEXOFENADINE [Concomitant]
  13. XOPENEX [Concomitant]

REACTIONS (11)
  - BRONCHOSPASM [None]
  - COUGH [None]
  - DEHYDRATION [None]
  - DIARRHOEA [None]
  - DYSPNOEA [None]
  - HYPOTENSION [None]
  - HYPOXIA [None]
  - NAUSEA [None]
  - PNEUMONIA [None]
  - PYREXIA [None]
  - VOMITING [None]
